FAERS Safety Report 19105462 (Version 1)
Quarter: 2021Q2

REPORT INFORMATION
  Report Type: Report from Study
  Country: US (occurrence: US)
  Receive Date: 20210407
  Receipt Date: 20210407
  Transmission Date: 20210717
  Serious: Yes (Hospitalization)
  Sender: FDA-Public Use
  Company Number: US-EXELIXIS-XL18421039012

PATIENT
  Age: 75 Year
  Sex: Male
  Weight: 96.1 kg

DRUGS (5)
  1. XL184 [Suspect]
     Active Substance: CABOZANTINIB
     Indication: RENAL CELL CARCINOMA
     Dosage: 40 MG, QD
     Route: 048
     Dates: start: 20201104
  2. IPILIMUMAB [Suspect]
     Active Substance: IPILIMUMAB
     Indication: RENAL CELL CARCINOMA
     Dosage: 1 MG/KG ON DAY 1 (CYCLES 1?4)
     Route: 042
     Dates: start: 20201104
  3. MEGESTROL [Suspect]
     Active Substance: MEGESTROL
     Indication: PRODUCT USED FOR UNKNOWN INDICATION
     Dosage: UNK
  4. NIVOLUMAB [Suspect]
     Active Substance: NIVOLUMAB
     Indication: RENAL CELL CARCINOMA
     Dosage: 3 MG/KG ON DAY 1 (CYCLES 1?4)
     Route: 042
     Dates: start: 20201104
  5. NIVOLUMAB [Suspect]
     Active Substance: NIVOLUMAB
     Dosage: 480 MG ON DAY 1 (CYCLES 5+)
     Route: 042
     Dates: start: 20210224

REACTIONS (1)
  - Acute respiratory failure [Recovered/Resolved]

NARRATIVE: CASE EVENT DATE: 20210303
